FAERS Safety Report 5233690-4 (Version None)
Quarter: 2007Q1

REPORT INFORMATION
  Report Type: 
  Country: None (occurrence: None)
  Receive Date: 20070208
  Receipt Date: 20070206
  Transmission Date: 20070707
  Serious: Yes (Other)
  Sender: FDA-Public Use
  Company Number: US-GLAXOSMITHKLINE-A0631469A

PATIENT
  Age: 15 Year
  Sex: Male
  Weight: 63.2 kg

DRUGS (5)
  1. WELLBUTRIN XL [Suspect]
     Indication: DEPRESSION
     Dosage: 300MG PER DAY
     Route: 048
  2. KLONOPIN [Suspect]
     Indication: DRUG USE FOR UNKNOWN INDICATION
  3. MARIJUANA [Concomitant]
  4. ZYPREXA [Concomitant]
     Indication: AGITATION
     Dosage: 10MG AT NIGHT
     Route: 048
  5. CLONIDINE [Concomitant]
     Dosage: .1MG TWICE PER DAY
     Route: 048

REACTIONS (11)
  - BLINDNESS [None]
  - BLINDNESS TRANSIENT [None]
  - DRUG DISPENSING ERROR [None]
  - DRUG INEFFECTIVE [None]
  - DRUG INTERACTION [None]
  - EYE INFLAMMATION [None]
  - EYE IRRITATION [None]
  - EYE PAIN [None]
  - PAPILLOEDEMA [None]
  - PHOTOPHOBIA [None]
  - VISUAL DISTURBANCE [None]
